FAERS Safety Report 10169282 (Version 2)
Quarter: 2014Q2

REPORT INFORMATION
  Report Type: Spontaneous
  Country: JP (occurrence: JP)
  Receive Date: 20140513
  Receipt Date: 20140513
  Transmission Date: 20141212
  Serious: Yes (Death)
  Sender: FDA-Public Use
  Company Number: JP-UCBSA-116626

PATIENT
  Age: 23 Year
  Sex: Female

DRUGS (2)
  1. E KEPPRA [Suspect]
     Indication: EPILEPSY
     Dosage: 500MG
     Route: 048
  2. HYDANTOL [Suspect]
     Dosage: UNKNOWN DOSE
     Route: 048

REACTIONS (2)
  - Completed suicide [Fatal]
  - Pregnancy [Recovered/Resolved]
